FAERS Safety Report 21811852 (Version 2)
Quarter: 2023Q1

REPORT INFORMATION
  Report Type: Spontaneous
  Country: US (occurrence: US)
  Receive Date: 20230103
  Receipt Date: 20230130
  Transmission Date: 20230417
  Serious: No
  Sender: FDA-Public Use
  Company Number: US-BIOVITRUM-2023US00100

PATIENT
  Sex: Female
  Weight: 8 kg

DRUGS (3)
  1. SYNAGIS [Suspect]
     Active Substance: PALIVIZUMAB
     Indication: Cardiomegaly
     Dosage: 100 MG SDV/INJ PF 1 ML 1^S
  2. SYNAGIS [Suspect]
     Active Substance: PALIVIZUMAB
     Indication: Cardiovascular disorder
  3. SYNAGIS [Suspect]
     Active Substance: PALIVIZUMAB
     Indication: Respiratory disorder

REACTIONS (4)
  - Ear infection [Recovered/Resolved]
  - Nasopharyngitis [Unknown]
  - Product dose omission issue [Unknown]
  - Off label use [Unknown]
